FAERS Safety Report 6783429-6 (Version None)
Quarter: 2010Q2

REPORT INFORMATION
  Report Type: 
  Country: None (occurrence: None)
  Receive Date: 20100622
  Receipt Date: 20100610
  Transmission Date: 20101027
  Serious: Yes (Death, Hospitalization, Other)
  Sender: FDA-Public Use
  Company Number: US-PFIZER INC-2010063210

PATIENT
  Sex: Male
  Weight: 68 kg

DRUGS (4)
  1. SUTENT [Suspect]
     Indication: RENAL CANCER
     Dosage: 50 MG, DAILY
     Route: 048
     Dates: start: 20100201, end: 20100501
  2. OXYCONTIN [Concomitant]
     Dosage: UNK
  3. VICODIN [Concomitant]
     Dosage: UNK
  4. LIDOCAINE [Concomitant]
     Dosage: UNK

REACTIONS (3)
  - BLOOD ALBUMIN DECREASED [None]
  - DEATH [None]
  - MALNUTRITION [None]
